FAERS Safety Report 7537666-3 (Version None)
Quarter: 2011Q2

REPORT INFORMATION
  Report Type: 
  Country: None (occurrence: None)
  Receive Date: 20110609
  Receipt Date: 20071004
  Transmission Date: 20111010
  Serious: Yes (Other)
  Sender: FDA-Public Use
  Company Number: PHEH2007US13142

PATIENT
  Sex: Female

DRUGS (2)
  1. INSULIN [Concomitant]
     Indication: DIABETES MELLITUS
     Dosage: 4 INJECTIONS DAILY
  2. DIOVAN HCT [Suspect]
     Indication: HYPERTENSION
     Dosage: 320 MG VAL 25 MG HCT, QD
     Route: 048
     Dates: start: 20070613

REACTIONS (6)
  - HYPOGLYCAEMIA [None]
  - FALL [None]
  - HYPERGLYCAEMIA [None]
  - DIABETES MELLITUS INADEQUATE CONTROL [None]
  - LOSS OF CONSCIOUSNESS [None]
  - PERIORBITAL HAEMATOMA [None]
